FAERS Safety Report 5673443-6 (Version None)
Quarter: 2008Q1

REPORT INFORMATION
  Report Type: 
  Country: None (occurrence: None)
  Receive Date: 20080319
  Receipt Date: 20080310
  Transmission Date: 20080703
  Serious: Yes (Death)
  Sender: FDA-Public Use
  Company Number: PK-ROCHE-552135

PATIENT

DRUGS (2)
  1. TRETINOIN [Suspect]
     Indication: ACUTE MYELOID LEUKAEMIA
     Dosage: 45 MG/M2 UNTIL COPLETE REMISSION OR DAY+90.
     Route: 065
  2. IDARUBICIN HCL [Concomitant]
     Indication: ACUTE MYELOID LEUKAEMIA
     Dosage: ROUTE REPORTED AS INTRAVENOUS INFUSION. ODATE REGIMEN: 12 MG/M2 INTRAVENOUS INFUSION OVER 30 MINS O+
     Route: 041

REACTIONS (1)
  - SEPSIS [None]
